FAERS Safety Report 5426220-5 (Version None)
Quarter: 2007Q3

REPORT INFORMATION
  Report Type: 
  Country: None (occurrence: None)
  Receive Date: 20070827
  Receipt Date: 20070817
  Transmission Date: 20080115
  Serious: Yes (Other)
  Sender: FDA-Public Use
  Company Number: GB-ROCHE-512276

PATIENT
  Age: 10 Year
  Sex: Male

DRUGS (4)
  1. NAPROXEN [Suspect]
     Indication: DRUG USE FOR UNKNOWN INDICATION
     Route: 065
  2. GENTAMICIN [Suspect]
     Indication: DRUG USE FOR UNKNOWN INDICATION
     Route: 042
  3. DICLOFENAC [Suspect]
     Indication: DRUG USE FOR UNKNOWN INDICATION
     Route: 065
  4. LAXATIVE NOS [Suspect]
     Indication: DRUG USE FOR UNKNOWN INDICATION
     Dosage: DRUG NAME REPORTED AS OSMOTIC LAXATIVES NOS
     Route: 065

REACTIONS (2)
  - RENAL FAILURE ACUTE [None]
  - RENAL TUBULAR NECROSIS [None]
